FAERS Safety Report 11803292 (Version 1)
Quarter: 2015Q4

REPORT INFORMATION
  Report Type: Spontaneous
  Country: US (occurrence: None)
  Receive Date: 20151203
  Receipt Date: 20151203
  Transmission Date: 20160305
  Serious: No
  Sender: FDA-Public Use
  Company Number: None

PATIENT
  Age: 26 Year
  Sex: Female

DRUGS (3)
  1. PRENATAL TAB [Concomitant]
  2. IRON [Concomitant]
     Active Substance: IRON
  3. MAKENA [Suspect]
     Active Substance: HYDROXYPROGESTERONE CAPROATE
     Indication: PREMATURE LABOUR
     Route: 030
     Dates: start: 201508

REACTIONS (4)
  - Gait disturbance [None]
  - Hypoaesthesia [None]
  - Drug dose omission [None]
  - Injection site pain [None]

NARRATIVE: CASE EVENT DATE: 20151127
